FAERS Safety Report 5399215-8 (Version None)
Quarter: 2007Q3

REPORT INFORMATION
  Report Type: 
  Country: None (occurrence: None)
  Receive Date: 20070727
  Receipt Date: 20070719
  Transmission Date: 20080115
  Serious: Yes (Other)
  Sender: FDA-Public Use
  Company Number: US-JNJFOC-20070704705

PATIENT
  Sex: Female
  Weight: 90.72 kg

DRUGS (6)
  1. TOPAMAX [Suspect]
     Indication: MIGRAINE
     Route: 048
  2. TOPAMAX [Suspect]
     Indication: PAIN
     Route: 048
  3. TOPAMAX [Suspect]
     Indication: TRIGEMINAL NEURALGIA
     Dosage: 200 MG AND 50 MG TABLETS TWICE DAILY.
     Route: 048
  4. WELLBUTRIN [Concomitant]
     Indication: DEPRESSION
     Route: 048
  5. CYMBALTA [Concomitant]
     Indication: PAIN
     Route: 048
  6. ZYRTEC [Concomitant]
     Indication: SEASONAL ALLERGY
     Route: 048

REACTIONS (3)
  - ARTHRALGIA [None]
  - MUSCULOSKELETAL PAIN [None]
  - OSTEOARTHRITIS [None]
